FAERS Safety Report 8400569-6 (Version None)
Quarter: 2012Q2

REPORT INFORMATION
  Report Type: 
  Country: None (occurrence: None)
  Receive Date: 20120531
  Receipt Date: 20120529
  Transmission Date: 20120825
  Serious: Yes (Other)
  Sender: FDA-Public Use
  Company Number: US-PFIZER INC-2012068956

PATIENT
  Sex: Male
  Weight: 107 kg

DRUGS (5)
  1. GLYBURIDE AND METFORMIN HYDROCHLORIDE [Concomitant]
     Indication: DIABETES MELLITUS
     Dosage: 2.5/500 MG, UNK
  2. ACTOS [Concomitant]
     Indication: DIABETES MELLITUS
     Dosage: 10 MG, 2X/DAY
  3. LYRICA [Suspect]
     Indication: INTERVERTEBRAL DISC PROTRUSION
     Dosage: 200 MG, 3X/DAY
     Route: 048
     Dates: start: 19870101
  4. LYRICA [Suspect]
     Indication: DIABETIC NEUROPATHY
  5. SITAGLIPTIN AND METFORMIN HYDROCHLORIDE [Concomitant]
     Indication: DIABETES MELLITUS
     Dosage: UNK, 2X/DAY

REACTIONS (9)
  - DRUG ADMINISTRATION ERROR [None]
  - PAIN [None]
  - INSOMNIA [None]
  - BACK PAIN [None]
  - BLOOD PRESSURE FLUCTUATION [None]
  - ARTHROPATHY [None]
  - CONSTIPATION [None]
  - DIABETES MELLITUS [None]
  - CONFUSIONAL STATE [None]
